FAERS Safety Report 9478679 (Version 2)
Quarter: 2013Q3

REPORT INFORMATION
  Report Type: Spontaneous
  Country: US (occurrence: US)
  Receive Date: 20130827
  Receipt Date: 20130910
  Transmission Date: 20140515
  Serious: Yes (Death)
  Sender: FDA-Public Use
  Company Number: US-PFIZER INC-2013243426

PATIENT
  Age: 71 Year
  Sex: Male

DRUGS (13)
  1. INLYTA [Suspect]
     Indication: RENAL CANCER
     Dosage: 5 MG, UNK
     Dates: start: 20130801
  2. AMITIZA [Concomitant]
     Dosage: UNK
  3. CLEARLAX [Concomitant]
  4. COLACE [Concomitant]
     Dosage: UNK
  5. COUMADIN [Concomitant]
     Dosage: UNK
  6. EMLA [Concomitant]
     Dosage: UNK
  7. FIBERCON [Concomitant]
     Dosage: UNK
  8. FUROSEMIDE [Concomitant]
     Dosage: UNK
  9. LACTULOSE [Concomitant]
     Dosage: UNK
  10. LISINOPRIL [Concomitant]
     Dosage: UNK
  11. MEGESTROL ACETATE [Concomitant]
     Dosage: UNK
  12. METHIMAZOLE [Concomitant]
     Dosage: UNK
  13. MILK OF MAGNESIA [Concomitant]
     Dosage: UNK

REACTIONS (1)
  - Death [Fatal]
